FAERS Safety Report 25822463 (Version 2)
Quarter: 2025Q4

REPORT INFORMATION
  Report Type: Spontaneous
  Country: US (occurrence: US)
  Receive Date: 20250919
  Receipt Date: 20251001
  Transmission Date: 20260117
  Serious: Yes (Other)
  Sender: AUROBINDO
  Company Number: US-AUROBINDO-AUR-APL-2025-046726

PATIENT
  Age: 22 Year
  Sex: Male

DRUGS (8)
  1. CYCLOPHOSPHAMIDE [Suspect]
     Active Substance: CYCLOPHOSPHAMIDE
     Indication: Epstein-Barr virus associated lymphoma
     Dosage: UNK UNK, CYCLICAL
     Route: 065
  2. PREDNISONE [Suspect]
     Active Substance: PREDNISONE
     Indication: Epstein-Barr virus associated lymphoma
     Dosage: UNK UNK, CYCLICAL
     Route: 065
  3. DOXORUBICIN [Suspect]
     Active Substance: DOXORUBICIN
     Indication: Epstein-Barr virus associated lymphoma
     Dosage: UNK UNK, CYCLICAL
     Route: 065
  4. VINCRISTINE [Suspect]
     Active Substance: VINCRISTINE
     Indication: Epstein-Barr virus associated lymphoma
     Dosage: UNK UNK, CYCLICAL
     Route: 065
  5. THIOTEPA [Concomitant]
     Active Substance: THIOTEPA
     Indication: B-cell lymphoma
     Dosage: UNK
     Route: 065
  6. THIOTEPA [Concomitant]
     Active Substance: THIOTEPA
     Indication: Haemophagocytic lymphohistiocytosis
  7. RITUXIMAB [Concomitant]
     Active Substance: RITUXIMAB
     Indication: B-cell lymphoma
     Dosage: UNK
     Route: 065
  8. RITUXIMAB [Concomitant]
     Active Substance: RITUXIMAB
     Indication: Haemophagocytic lymphohistiocytosis

REACTIONS (12)
  - Pneumonia [Unknown]
  - Septic shock [Unknown]
  - Thrombocytopenia [Unknown]
  - Haemophagocytic lymphohistiocytosis [Recovering/Resolving]
  - B-cell lymphoma [Recovering/Resolving]
  - Hypertriglyceridaemia [Unknown]
  - Lymphadenopathy [Unknown]
  - Hyperferritinaemia [Unknown]
  - Hepatosplenomegaly [Unknown]
  - Mental status changes [Unknown]
  - Anaemia [Unknown]
  - Pyrexia [Unknown]
